FAERS Safety Report 17155990 (Version 1)
Quarter: 2019Q4

REPORT INFORMATION
  Report Type: Spontaneous
  Country: US (occurrence: US)
  Receive Date: 20191216
  Receipt Date: 20191216
  Transmission Date: 20200122
  Serious: No
  Sender: FDA-Public Use
  Company Number: US-GLAXOSMITHKLINE-US2019226826

PATIENT
  Age: 54 Year
  Sex: Female

DRUGS (1)
  1. ABREVA [Suspect]
     Active Substance: DOCOSANOL
     Indication: ORAL HERPES
     Dosage: UNK
     Dates: start: 20191208

REACTIONS (5)
  - Pain in jaw [Unknown]
  - Swelling face [Not Recovered/Not Resolved]
  - Nodule [Unknown]
  - Facial pain [Unknown]
  - Skin reaction [Unknown]

NARRATIVE: CASE EVENT DATE: 20191209
